FAERS Safety Report 9964369 (Version 3)
Quarter: 2014Q3

REPORT INFORMATION
  Report Type: Spontaneous
  Country: FR (occurrence: FR)
  Receive Date: 20140305
  Receipt Date: 20140805
  Transmission Date: 20150326
  Serious: Yes (Congenital Anomaly)
  Sender: FDA-Public Use
  Company Number: FR-GLAXOSMITHKLINE-B0972863A

PATIENT

DRUGS (2)
  1. LAMICTAL [Suspect]
     Active Substance: LAMOTRIGINE
     Indication: EPILEPSY
     Dosage: 350MG PER DAY
     Route: 064
     Dates: start: 2006
  2. SPECIAFOLDINE [Suspect]
     Active Substance: FOLIC ACID
     Route: 064
     Dates: start: 2013

REACTIONS (4)
  - Foetal exposure during pregnancy [Unknown]
  - Prenatal screening test abnormal [Unknown]
  - Gallbladder anomaly congenital [Not Recovered/Not Resolved]
  - Exposure during breast feeding [Unknown]

NARRATIVE: CASE EVENT DATE: 2014
